FAERS Safety Report 7355772-3 (Version None)
Quarter: 2011Q1

REPORT INFORMATION
  Report Type: 
  Country: None (occurrence: None)
  Receive Date: 20110316
  Receipt Date: 20110304
  Transmission Date: 20110831
  Serious: Yes (Hospitalization, Other)
  Sender: FDA-Public Use
  Company Number: US-MERCK-1008USA00274

PATIENT
  Age: 51 Year
  Sex: Female
  Weight: 58 kg

DRUGS (4)
  1. PAXIL [Concomitant]
     Indication: HOT FLUSH
     Route: 065
     Dates: start: 19920101
  2. FOSAMAX [Suspect]
     Indication: OSTEOPENIA
     Route: 048
     Dates: start: 19960801, end: 20090305
  3. FOSAMAX [Suspect]
     Route: 048
     Dates: start: 19960801, end: 20090901
  4. FOSAMAX [Suspect]
     Route: 048
     Dates: start: 20080901

REACTIONS (39)
  - HAEMORRHAGE [None]
  - METASTATIC NEOPLASM [None]
  - TOOTH DISORDER [None]
  - OSTEOPOROSIS [None]
  - OSTEOARTHRITIS [None]
  - FEMUR FRACTURE [None]
  - FALL [None]
  - TONSILLAR DISORDER [None]
  - ARTHROPATHY [None]
  - NAUSEA [None]
  - ANXIETY DISORDER [None]
  - FATIGUE [None]
  - STRESS [None]
  - BREAST CANCER [None]
  - NEOPLASM MALIGNANT [None]
  - MENTAL IMPAIRMENT [None]
  - MUSCLE SPASMS [None]
  - LACERATION [None]
  - JOINT HYPEREXTENSION [None]
  - RASH [None]
  - ARTHRALGIA [None]
  - DEPRESSION [None]
  - ANXIETY [None]
  - INTERVERTEBRAL DISC DEGENERATION [None]
  - BACK PAIN [None]
  - VITAMIN D DEFICIENCY [None]
  - SCOLIOSIS [None]
  - IMPAIRED HEALING [None]
  - DEVICE FAILURE [None]
  - FRACTURE NONUNION [None]
  - MYALGIA [None]
  - AMNESIA [None]
  - VOMITING [None]
  - TOOTH FRACTURE [None]
  - DRUG HYPERSENSITIVITY [None]
  - BONE DISORDER [None]
  - APPENDIX DISORDER [None]
  - FALLOPIAN TUBE DISORDER [None]
  - PARAESTHESIA [None]
